FAERS Safety Report 6043827-5 (Version None)
Quarter: 2009Q1

REPORT INFORMATION
  Report Type: 
  Country: None (occurrence: None)
  Receive Date: 20090120
  Receipt Date: 20090109
  Transmission Date: 20090719
  Serious: Yes (Other)
  Sender: FDA-Public Use
  Company Number: US-AMGEN-QUU325532

PATIENT
  Sex: Female
  Weight: 79.1 kg

DRUGS (3)
  1. ARANESP [Suspect]
     Indication: ANAEMIA OF MALIGNANT DISEASE
     Route: 058
     Dates: start: 20081224
  2. GLEEVEC [Concomitant]
  3. INSULIN [Concomitant]
     Dates: start: 20080101

REACTIONS (5)
  - CARCINOID TUMOUR [None]
  - FATIGUE [None]
  - GASTRIC CANCER [None]
  - LUNG NEOPLASM [None]
  - TRANSIENT ISCHAEMIC ATTACK [None]
